FAERS Safety Report 9767816 (Version 3)
Quarter: 2014Q1

REPORT INFORMATION
  Report Type: Spontaneous
  Country: US (occurrence: US)
  Receive Date: 20131217
  Receipt Date: 20140213
  Transmission Date: 20141002
  Serious: Yes (Hospitalization, Other)
  Sender: FDA-Public Use
  Company Number: US-TEVA-450227USA

PATIENT
  Age: 44 Year
  Sex: Female
  Weight: 57.2 kg

DRUGS (19)
  1. ACTIQ [Suspect]
     Indication: NEURALGIA
  2. ACTIQ [Suspect]
     Indication: BREAKTHROUGH PAIN
  3. ACTIQ [Suspect]
     Indication: DENTAL OPERATION
  4. DEMEROL [Concomitant]
     Indication: PAIN
  5. LYRICA [Concomitant]
     Indication: NEURALGIA
  6. TYLENOL [Concomitant]
     Indication: PAIN
  7. TRAMADOL [Concomitant]
     Indication: PAIN
  8. TORADOL [Concomitant]
     Indication: PAIN
  9. IMMUNOGLOBULIN [Concomitant]
     Indication: SYSTEMIC LUPUS ERYTHEMATOSUS
     Route: 042
  10. ARANESP [Concomitant]
     Indication: ANAEMIA
  11. MAGNESIUM [Concomitant]
     Indication: MINERAL SUPPLEMENTATION
  12. TRILIPIX [Concomitant]
     Indication: BLOOD TRIGLYCERIDES INCREASED
  13. MILK THISTLE [Concomitant]
     Indication: PHYTOTHERAPY
  14. MYCOSTATIN [Concomitant]
     Indication: CANDIDA INFECTION
  15. PROCARDIA [Concomitant]
     Indication: BLOOD PRESSURE ABNORMAL
  16. NEXIUM [Concomitant]
     Indication: GASTROOESOPHAGEAL REFLUX DISEASE
  17. DESMOPRESSIN [Concomitant]
     Indication: DIABETES INSIPIDUS
  18. BENADRYL [Concomitant]
     Indication: URTICARIA
  19. BENADRYL [Concomitant]
     Indication: PRURITUS

REACTIONS (4)
  - Morton^s neuralgia [Recovered/Resolved]
  - Localised infection [Not Recovered/Not Resolved]
  - Neuralgia [Not Recovered/Not Resolved]
  - Off label use [Unknown]
